FAERS Safety Report 17873987 (Version 1)
Quarter: 2020Q2

REPORT INFORMATION
  Report Type: Spontaneous
  Country: NO (occurrence: NO)
  Receive Date: 20200609
  Receipt Date: 20200609
  Transmission Date: 20200714
  Serious: Yes (Life-Threatening)
  Sender: FDA-Public Use
  Company Number: NO-TEVA-2020-NO-1244521

PATIENT
  Age: 82 Year
  Sex: Male

DRUGS (4)
  1. LIDOCAINE. [Suspect]
     Active Substance: LIDOCAINE
     Indication: ANAESTHESIA PROCEDURE
     Dosage: UNKNOWN DOSAGE
     Route: 042
     Dates: start: 20200511, end: 20200511
  2. FENTANYL. [Suspect]
     Active Substance: FENTANYL
     Indication: ANAESTHESIA PROCEDURE
     Dosage: UNKNOWN DOSAGE
     Route: 042
     Dates: start: 20200511, end: 20200511
  3. KETAMINE [Suspect]
     Active Substance: KETAMINE
     Indication: ANAESTHESIA PROCEDURE
     Dosage: UNKNOWN DOSAGE
     Route: 042
     Dates: start: 20200511, end: 20200511
  4. PROPOFOL. [Suspect]
     Active Substance: PROPOFOL
     Indication: ANAESTHESIA PROCEDURE
     Dosage: UNKNOWN DOSAGE
     Route: 042
     Dates: start: 20200511, end: 20200511

REACTIONS (1)
  - Anaphylactic shock [Recovered/Resolved]

NARRATIVE: CASE EVENT DATE: 20200511
